FAERS Safety Report 4654849-0 (Version None)
Quarter: 2005Q2

REPORT INFORMATION
  Report Type: 
  Country: None (occurrence: None)
  Receive Date: 20050506
  Receipt Date: 20040420
  Transmission Date: 20051028
  Serious: No
  Sender: FDA-Public Use
  Company Number: US-GLAXOSMITHKLINE-A0507665A

PATIENT
  Age: 10 Month
  Sex: Female

DRUGS (3)
  1. AMOXIL [Suspect]
     Indication: ILL-DEFINED DISORDER
     Dosage: 300MG TWICE PER DAY
     Route: 048
     Dates: start: 20040415
  2. DELSYM [Concomitant]
  3. CHILDREN'S MOTRIN [Concomitant]

REACTIONS (1)
  - DRUG INEFFECTIVE [None]
